FAERS Safety Report 5448045-7 (Version None)
Quarter: 2007Q3

REPORT INFORMATION
  Report Type: 
  Country: None (occurrence: None)
  Receive Date: 20070910
  Receipt Date: 20070829
  Transmission Date: 20080115
  Serious: Yes (Hospitalization)
  Sender: FDA-Public Use
  Company Number: AU-MERCK-0708AUS00292

PATIENT
  Age: 89 Year
  Sex: Male

DRUGS (6)
  1. INDOCIN [Suspect]
     Indication: BURSITIS
     Route: 048
     Dates: start: 20060915, end: 20061005
  2. INDOCIN [Suspect]
     Indication: TENOSYNOVITIS
     Route: 048
     Dates: start: 20060915, end: 20061005
  3. MODURETIC 5-50 [Suspect]
     Indication: BURSITIS
     Route: 048
     Dates: start: 20061003, end: 20061005
  4. MODURETIC 5-50 [Suspect]
     Indication: TENOSYNOVITIS
     Route: 048
     Dates: start: 20061003, end: 20061005
  5. QUINSUL [Concomitant]
     Route: 048
  6. ALLOPURINOL [Concomitant]
     Indication: METABOLIC DISORDER
     Route: 065

REACTIONS (2)
  - CONFUSIONAL STATE [None]
  - HYPONATRAEMIA [None]
